FAERS Safety Report 18692434 (Version 1)
Quarter: 2021Q1

REPORT INFORMATION
  Report Type: Spontaneous
  Country: US (occurrence: US)
  Receive Date: 20210103
  Receipt Date: 20210103
  Transmission Date: 20210419
  Serious: No
  Sender: FDA-Public Use
  Company Number: US-SA-2020SA370820

PATIENT

DRUGS (1)
  1. TUBERCULIN PPD(M) 5 TU [Suspect]
     Active Substance: TUBERCULIN PURIFIED PROTEIN DERIVATIVE
     Dosage: UNK

REACTIONS (1)
  - Injection site discolouration [Unknown]
